FAERS Safety Report 5672345-9 (Version None)
Quarter: 2008Q1

REPORT INFORMATION
  Report Type: 
  Country: None (occurrence: None)
  Receive Date: 20080318
  Receipt Date: 20080318
  Transmission Date: 20080703
  Serious: Yes (Death)
  Sender: FDA-Public Use
  Company Number: None

PATIENT
  Sex: Female
  Weight: 85.2762 kg

DRUGS (9)
  1. SOTALOL HCL [Suspect]
     Indication: ATRIAL FIBRILLATION
     Dosage: 120MG BID PO; PRIOR TO ADMISSION
     Route: 048
  2. AZITHROMYCIN [Suspect]
     Indication: PNEUMONIA
     Dosage: 500MG DAILY IV
     Route: 042
     Dates: start: 20070808, end: 20070813
  3. LEVAQUIN [Suspect]
  4. ZETIA [Suspect]
  5. NEXIUM [Concomitant]
  6. COZAAR [Suspect]
  7. TOPROL-XL [Suspect]
  8. BUMETANINE [Concomitant]
  9. INSULIN [Concomitant]

REACTIONS (3)
  - ANOXIC ENCEPHALOPATHY [None]
  - CARDIAC ARREST [None]
  - VENTRICULAR FIBRILLATION [None]
